FAERS Safety Report 10043327 (Version 1)
Quarter: 2014Q1

REPORT INFORMATION
  Report Type: Spontaneous
  Country: US (occurrence: US)
  Receive Date: 20140328
  Receipt Date: 20140328
  Transmission Date: 20141002
  Serious: Yes (Other)
  Sender: FDA-Public Use
  Company Number: US-SA-2014SA037422

PATIENT
  Age: 79 Year
  Sex: Female
  Weight: 49 kg

DRUGS (7)
  1. HECTOROL [Suspect]
     Indication: PRODUCT USED FOR UNKNOWN INDICATION
     Route: 065
     Dates: start: 20131217
  2. EPOGEN [Suspect]
     Indication: PRODUCT USED FOR UNKNOWN INDICATION
     Route: 065
     Dates: start: 20131217
  3. VENOFER [Suspect]
     Indication: NEPHROGENIC ANAEMIA
     Route: 065
     Dates: start: 20131217
  4. VENOFER [Suspect]
     Indication: NEPHROGENIC ANAEMIA
     Dosage: DOSE:20 MILLIGRAM(S)/MILLILITRE
     Route: 042
  5. NATURALYTE [Concomitant]
  6. NORMAL SALINE [Concomitant]
  7. ALL OTHER THERAPEUTIC PRODUCTS [Concomitant]

REACTIONS (4)
  - Hypotension [Unknown]
  - Altered state of consciousness [Unknown]
  - Discomfort [Unknown]
  - Staring [Unknown]
